FAERS Safety Report 9354646 (Version 1)
Quarter: 2013Q2

REPORT INFORMATION
  Report Type: Spontaneous
  Country: US (occurrence: US)
  Receive Date: 20130618
  Receipt Date: 20130618
  Transmission Date: 20140414
  Serious: Yes (Other)
  Sender: FDA-Public Use
  Company Number: US-ELI_LILLY_AND_COMPANY-US201306003050

PATIENT
  Age: 55 Year
  Sex: Female
  Weight: 99.77 kg

DRUGS (7)
  1. HUMULIN NPH [Suspect]
     Indication: DIABETES MELLITUS
  2. SUTENT [Concomitant]
     Indication: RENAL CELL CARCINOMA STAGE IV
     Dosage: 25 MG, QD
     Dates: start: 201301, end: 201304
  3. SUTENT [Concomitant]
     Dosage: 50 MG, QD
     Dates: start: 201304
  4. SUTENT [Concomitant]
     Dosage: 37 MG, QD
  5. LANTUS [Concomitant]
     Indication: DIABETES MELLITUS
     Dosage: 27 IU, QD
  6. LANTUS [Concomitant]
     Dosage: 6 IU, QD
  7. DYAZIDE [Concomitant]
     Indication: BLOOD PRESSURE INCREASED
     Dosage: 25/37.5 MG, QD

REACTIONS (17)
  - Renal cell carcinoma stage IV [Not Recovered/Not Resolved]
  - Blood glucose decreased [Unknown]
  - Flatulence [Unknown]
  - Constipation [Unknown]
  - Diarrhoea [Unknown]
  - Oropharyngeal pain [Unknown]
  - Decreased appetite [Unknown]
  - Ageusia [Unknown]
  - Nausea [Unknown]
  - Hyperhidrosis [Unknown]
  - Asthenia [Unknown]
  - Fatigue [Unknown]
  - Pyrexia [Unknown]
  - Pallor [Unknown]
  - Rash [Unknown]
  - Blood glucose increased [Unknown]
  - Blood pressure increased [Unknown]
